FAERS Safety Report 15094749 (Version 2)
Quarter: 2018Q3

REPORT INFORMATION
  Report Type: Spontaneous
  Country: US (occurrence: US)
  Receive Date: 20180701
  Receipt Date: 20180816
  Transmission Date: 20181010
  Serious: No
  Sender: FDA-Public Use
  Company Number: US-ASTRAZENECA-2018SE76200

PATIENT
  Sex: Male
  Weight: 93 kg

DRUGS (4)
  1. BYDUREON BCISE [Suspect]
     Active Substance: EXENATIDE
     Indication: BLOOD GLUCOSE ABNORMAL
     Route: 058
     Dates: start: 20180315
  2. APRIDRA [Concomitant]
     Indication: INSULIN RESISTANCE
     Dosage: BEFORE MEALS
     Route: 058
  3. ARICEPT [Concomitant]
     Active Substance: DONEPEZIL HYDROCHLORIDE
     Indication: DEMENTIA
     Route: 065
  4. LEVAMIR [Concomitant]
     Indication: INSULIN RESISTANCE
     Dosage: TWO TIMES A DAY
     Route: 058

REACTIONS (5)
  - Incorrect dose administered [Not Recovered/Not Resolved]
  - Drug administration error [Unknown]
  - Device leakage [Unknown]
  - Weight increased [Not Recovered/Not Resolved]
  - Intentional device misuse [Unknown]

NARRATIVE: CASE EVENT DATE: 20180315
